FAERS Safety Report 15058520 (Version 8)
Quarter: 2021Q3

REPORT INFORMATION
  Report Type: Spontaneous
  Country: DE (occurrence: DE)
  Receive Date: 20180625
  Receipt Date: 20210723
  Transmission Date: 20211014
  Serious: Yes (Death, Hospitalization, Congenital Anomaly)
  Sender: FDA-Public Use
  Company Number: PHHY2017DE200250

PATIENT
  Age: 9 Decade
  Sex: Male
  Weight: 66 kg

DRUGS (13)
  1. GRANISETRON [Concomitant]
     Active Substance: GRANISETRON
     Indication: PROPHYLAXIS
     Dosage: 2 MG
     Route: 048
     Dates: start: 20170602
  2. CARBOPLATIN. [Suspect]
     Active Substance: CARBOPLATIN
     Indication: NON-SMALL CELL LUNG CANCER
     Dosage: 1 DF, QD (6 MG/MIN/ML)
     Route: 041
     Dates: start: 20170602, end: 20170703
  3. ZOMETA [Concomitant]
     Active Substance: ZOLEDRONIC ACID
     Indication: PROPHYLAXIS
     Dosage: 4 MG, QD
     Route: 041
     Dates: start: 20170630
  4. SPIOLTO RESPIMAT [Concomitant]
     Active Substance: OLODATEROL HYDROCHLORIDE\TIOTROPIUM BROMIDE MONOHYDRATE
     Dosage: 2
     Route: 048
  5. ABRAXANE [Suspect]
     Active Substance: PACLITAXEL
     Dosage: 100 MG/M2, QD
     Route: 041
     Dates: start: 201707, end: 20170717
  6. CARBOPLATIN. [Suspect]
     Active Substance: CARBOPLATIN
     Dosage: 6 MG, MIN/ML
     Route: 041
     Dates: start: 20170602, end: 20170703
  7. ABRAXANE [Suspect]
     Active Substance: PACLITAXEL
     Indication: NON-SMALL CELL LUNG CANCER
     Dosage: 100 MILLIGRAM/SQ. METER
     Route: 041
     Dates: start: 20170602
  8. DEXAMETHASONE. [Concomitant]
     Active Substance: DEXAMETHASONE
     Indication: PROPHYLAXIS
     Dosage: 4 MG
     Route: 048
     Dates: start: 20170602
  9. IMODIUM [Concomitant]
     Active Substance: LOPERAMIDE HYDROCHLORIDE
     Indication: PROPHYLAXIS
     Dosage: 1
     Route: 048
     Dates: start: 20170619
  10. ABRAXANE [Suspect]
     Active Substance: PACLITAXEL
     Dosage: 100 MILLIGRAM/SQ. METER
     Route: 041
     Dates: start: 20170703, end: 20170710
  11. NOVAMINOSULFON [Concomitant]
     Active Substance: METAMIZOLE SODIUM
     Indication: PROPHYLAXIS
     Dosage: UNK UNK,QD (4)
     Route: 048
  12. SPIOLTO RESPIMAT [Concomitant]
     Active Substance: OLODATEROL HYDROCHLORIDE\TIOTROPIUM BROMIDE MONOHYDRATE
     Dosage: UNK 2
     Route: 048
  13. SPIOLTO RESPIMAT [Concomitant]
     Active Substance: OLODATEROL HYDROCHLORIDE\TIOTROPIUM BROMIDE MONOHYDRATE
     Indication: PROPHYLAXIS
     Dosage: UNK
     Route: 048

REACTIONS (10)
  - General physical health deterioration [Fatal]
  - Neoplasm progression [Fatal]
  - Diarrhoea [Recovered/Resolved]
  - Alanine aminotransferase increased [Recovered/Resolved]
  - Blood alkaline phosphatase increased [Not Recovered/Not Resolved]
  - Leukopenia [Fatal]
  - Non-small cell lung cancer [Fatal]
  - Stomatitis [Recovered/Resolved]
  - C-reactive protein increased [Not Recovered/Not Resolved]
  - Laboratory test abnormal [Recovered/Resolved]

NARRATIVE: CASE EVENT DATE: 20170619
